FAERS Safety Report 17251711 (Version 1)
Quarter: 2020Q1

REPORT INFORMATION
  Report Type: Spontaneous
  Country: FR (occurrence: FR)
  Receive Date: 20200109
  Receipt Date: 20200109
  Transmission Date: 20200409
  Serious: Yes (Other)
  Sender: FDA-Public Use
  Company Number: FR-SA-2020SA001400

PATIENT
  Age: 33 Year
  Sex: Female

DRUGS (1)
  1. RIFINAH [Suspect]
     Active Substance: ISONIAZID\RIFAMPIN
     Indication: ANTIBIOTIC PROPHYLAXIS
     Dosage: NOT SPECIFIED
     Route: 048
     Dates: start: 20190812, end: 20190927

REACTIONS (2)
  - Abdominal pain upper [Recovered/Resolved]
  - Hepatocellular injury [Recovered/Resolved]

NARRATIVE: CASE EVENT DATE: 20190927
